FAERS Safety Report 18571008 (Version 1)
Quarter: 2020Q4

REPORT INFORMATION
  Report Type: Spontaneous
  Country: US (occurrence: US)
  Receive Date: 20201202
  Receipt Date: 20201202
  Transmission Date: 20210114
  Serious: No
  Sender: FDA-Public Use
  Company Number: US-NOVEN PHARMACEUTICALS, INC.-2020US003630

PATIENT
  Sex: Female
  Weight: 48.53 kg

DRUGS (2)
  1. AGX ESTRADIOL FOR MINIVELLE [Suspect]
     Active Substance: ESTRADIOL
     Indication: OFF LABEL USE
     Dosage: 0.075 MG
     Route: 062
     Dates: end: 2019
  2. AGX ESTRADIOL FOR MINIVELLE [Suspect]
     Active Substance: ESTRADIOL
     Indication: HORMONE THERAPY

REACTIONS (4)
  - Disturbance in attention [Unknown]
  - Off label use [Recovered/Resolved]
  - Mood altered [Unknown]
  - Headache [Unknown]
